FAERS Safety Report 6773341-0 (Version None)
Quarter: 2010Q2

REPORT INFORMATION
  Report Type: 
  Country: None (occurrence: None)
  Receive Date: 20100616
  Receipt Date: 20100607
  Transmission Date: 20101027
  Serious: Yes (Hospitalization)
  Sender: FDA-Public Use
  Company Number: JP-ABBOTT-10P-087-0646200-00

PATIENT
  Sex: Male
  Weight: 56.5 kg

DRUGS (4)
  1. HUMIRA [Suspect]
     Indication: RHEUMATOID ARTHRITIS
     Route: 058
     Dates: start: 20090824, end: 20100501
  2. PREDNISOLONE [Suspect]
     Indication: RHEUMATOID ARTHRITIS
     Dosage: 8MG DAILY
     Route: 048
     Dates: end: 20100404
  3. PREDNISOLONE [Suspect]
     Dates: start: 20100405
  4. LOXOPROFEN SODIUM HYDRATE [Concomitant]
     Indication: RHEUMATOID ARTHRITIS
     Route: 048
     Dates: start: 20100515

REACTIONS (2)
  - PNEUMONIA BACTERIAL [None]
  - RESPIRATORY FAILURE [None]
